FAERS Safety Report 7452502-1 (Version None)
Quarter: 2011Q2

REPORT INFORMATION
  Report Type: 
  Country: None (occurrence: None)
  Receive Date: 20110502
  Receipt Date: 20100908
  Transmission Date: 20111010
  Serious: No
  Sender: FDA-Public Use
  Company Number: US-ASTRAZENECA-2010SE42257

PATIENT
  Age: 71 Year
  Sex: Female

DRUGS (9)
  1. ATENOLOL [Concomitant]
  2. POTASSIUM [Concomitant]
  3. NEXIUM [Suspect]
     Route: 048
  4. MULTI-VITAMINS [Concomitant]
  5. THYROID MEDICATION [Concomitant]
  6. LOVENOX [Concomitant]
  7. LASIX [Concomitant]
  8. GLUCATROL [Concomitant]
  9. AVAPRO [Concomitant]

REACTIONS (1)
  - VITAMIN D DEFICIENCY [None]
